FAERS Safety Report 9259170 (Version 1)
Quarter: 2013Q2

REPORT INFORMATION
  Report Type: Spontaneous
  Country: GR (occurrence: GR)
  Receive Date: 20130426
  Receipt Date: 20130426
  Transmission Date: 20140414
  Serious: Yes (Other)
  Sender: FDA-Public Use
  Company Number: GR-ASTRAZENECA-2013SE28242

PATIENT
  Age: 6 Month
  Sex: Male
  Weight: 9 kg

DRUGS (1)
  1. SYNAGIS [Suspect]
     Indication: IMMUNISATION
     Dosage: MONTHLY
     Route: 030
     Dates: start: 20130304, end: 20130304

REACTIONS (3)
  - Hypotonia [Recovered/Resolved]
  - Hyporesponsive to stimuli [Recovered/Resolved]
  - Hypophagia [Recovered/Resolved]
